FAERS Safety Report 5280900-3 (Version None)
Quarter: 2007Q1

REPORT INFORMATION
  Report Type: 
  Country: None (occurrence: None)
  Receive Date: 20070329
  Receipt Date: 20070327
  Transmission Date: 20070707
  Serious: Yes (Other)
  Sender: FDA-Public Use
  Company Number: BR-SHR-BR-2006-041519

PATIENT
  Age: 41 Year
  Sex: Female

DRUGS (6)
  1. MIRENA [Suspect]
     Indication: INTRA-UTERINE CONTRACEPTIVE DEVICE
     Dosage: 20 A?G/DAY, CONT
     Route: 015
     Dates: start: 20061006
  2. CELEBRA ^PFIZER^ [Concomitant]
     Indication: INFLAMMATION
     Dosage: UNK, UNK
     Route: 065
     Dates: start: 20060101
  3. UNSPECIFIED DRUG [Concomitant]
     Indication: INFLAMMATION
     Dosage: UNK, UNK
     Route: 065
     Dates: start: 20060101
  4. FLUOXETINE HCL [Concomitant]
     Indication: INFLAMMATION
     Dosage: UNK, UNK
     Route: 065
     Dates: start: 20060101
  5. VITAMIN B6 [Concomitant]
     Dosage: UNK, UNK
     Route: 048
  6. VITAMIN B-12 [Concomitant]
     Dosage: UNK, UNK
     Route: 048

REACTIONS (7)
  - BACTERIAL INFECTION [None]
  - BREAST SWELLING [None]
  - GENITAL HAEMORRHAGE [None]
  - IUCD COMPLICATION [None]
  - METRORRHAGIA [None]
  - MYELITIS [None]
  - PELVIC PAIN [None]
